FAERS Safety Report 17858732 (Version 1)
Quarter: 2020Q2

REPORT INFORMATION
  Report Type: Report from Study
  Country: None (occurrence: US)
  Receive Date: 20200604
  Receipt Date: 20200604
  Transmission Date: 20200714
  Serious: No
  Sender: FDA-Public Use
  Company Number: US-US WORLDMEDS, LLC-USW202002-000305

PATIENT
  Age: 51 Year
  Sex: Male

DRUGS (6)
  1. MIRAPEX ER [Concomitant]
     Active Substance: PRAMIPEXOLE DIHYDROCHLORIDE
  2. NEUPRO [Concomitant]
     Active Substance: ROTIGOTINE
  3. APOKYN [Suspect]
     Active Substance: APOMORPHINE HYDROCHLORIDE
     Route: 058
  4. SINEMET [Concomitant]
     Active Substance: CARBIDOPA\LEVODOPA
  5. GOCOVRI [Concomitant]
     Active Substance: AMANTADINE
  6. APOKYN [Suspect]
     Active Substance: APOMORPHINE HYDROCHLORIDE
     Indication: PARKINSON^S DISEASE
     Dosage: 30MG/3ML
     Route: 058
     Dates: start: 20200207

REACTIONS (2)
  - On and off phenomenon [Recovered/Resolved]
  - Dyskinesia [Recovered/Resolved]

NARRATIVE: CASE EVENT DATE: 20200211
